FAERS Safety Report 11086872 (Version 1)
Quarter: 2015Q2

REPORT INFORMATION
  Report Type: Spontaneous
  Country: AR (occurrence: AR)
  Receive Date: 20150504
  Receipt Date: 20150504
  Transmission Date: 20150821
  Serious: Yes (Other)
  Sender: FDA-Public Use
  Company Number: AR-AMGEN-ARGSP2014089986

PATIENT
  Age: 82 Year
  Sex: Female

DRUGS (1)
  1. ENBREL [Suspect]
     Active Substance: ETANERCEPT
     Indication: RHEUMATOID ARTHRITIS
     Dosage: 50 MG, WEEKLY
     Route: 065
     Dates: start: 20120812

REACTIONS (8)
  - Rheumatoid arthritis [Unknown]
  - Red blood cell count increased [Unknown]
  - Secretion discharge [Unknown]
  - Drug ineffective [Unknown]
  - Ear infection [Not Recovered/Not Resolved]
  - Mobility decreased [Unknown]
  - Deafness [Not Recovered/Not Resolved]
  - Pain [Unknown]

NARRATIVE: CASE EVENT DATE: 2013
